FAERS Safety Report 13239362 (Version 2)
Quarter: 2017Q2

REPORT INFORMATION
  Report Type: Spontaneous
  Country: TW (occurrence: TW)
  Receive Date: 20170216
  Receipt Date: 20170517
  Transmission Date: 20170830
  Serious: Yes (Hospitalization, Other)
  Sender: FDA-Public Use
  Company Number: TW-PFIZER INC-2016168054

PATIENT
  Age: 61 Year
  Sex: Male

DRUGS (4)
  1. SUTENT [Suspect]
     Active Substance: SUNITINIB MALATE
     Dosage: 25 MG, QD
     Dates: start: 20170210, end: 2017
  2. SUTENT [Suspect]
     Active Substance: SUNITINIB MALATE
     Indication: GASTROINTESTINAL STROMAL TUMOUR
     Dosage: 37.5 MG, QD
     Route: 048
     Dates: start: 20160319, end: 20160512
  3. SUTENT [Suspect]
     Active Substance: SUNITINIB MALATE
     Dosage: 25 MG, QD
     Route: 048
     Dates: start: 20161101, end: 20170206
  4. SUTENT [Suspect]
     Active Substance: SUNITINIB MALATE
     Dosage: 12.5 MG, QD
     Route: 048
     Dates: start: 20160613

REACTIONS (12)
  - Neoplasm progression [Unknown]
  - Blood pressure increased [Recovered/Resolved]
  - Osteonecrosis of jaw [Unknown]
  - Dyspnoea [Recovered/Resolved]
  - Tumour rupture [Unknown]
  - Tumour haemorrhage [Recovered/Resolved]
  - Yellow skin [Recovered/Resolved]
  - Skin lesion [Not Recovered/Not Resolved]
  - Mouth ulceration [Recovered/Resolved]
  - Gingival swelling [Not Recovered/Not Resolved]
  - Gingival ulceration [Not Recovered/Not Resolved]
  - Headache [Recovered/Resolved]

NARRATIVE: CASE EVENT DATE: 20160319
